FAERS Safety Report 19568404 (Version 1)
Quarter: 2021Q3

REPORT INFORMATION
  Report Type: Report from Study
  Country: CN (occurrence: CN)
  Receive Date: 20210716
  Receipt Date: 20210716
  Transmission Date: 20211014
  Serious: Yes (Other)
  Sender: FDA-Public Use
  Company Number: CN-TAKEDA-2021TUS043969

PATIENT
  Age: 72 Year
  Sex: Male
  Weight: 55 kg

DRUGS (1)
  1. IXAZOMIB [Suspect]
     Active Substance: IXAZOMIB
     Indication: PLASMA CELL MYELOMA REFRACTORY
     Dosage: 4 MILLIGRAM
     Route: 048
     Dates: start: 20210329

REACTIONS (9)
  - Blood pressure increased [Recovering/Resolving]
  - Abdominal discomfort [Recovering/Resolving]
  - Lymphocyte count decreased [Recovered/Resolved]
  - Constipation [Recovering/Resolving]
  - Psychotic behaviour [Recovering/Resolving]
  - Insomnia [Recovering/Resolving]
  - Anaemia [Recovered/Resolved]
  - Hypokalaemia [Recovering/Resolving]
  - Hypocalcaemia [Recovering/Resolving]

NARRATIVE: CASE EVENT DATE: 20210330
